FAERS Safety Report 8123229-8 (Version None)
Quarter: 2012Q1

REPORT INFORMATION
  Report Type: 
  Country: None (occurrence: None)
  Receive Date: 20120208
  Receipt Date: 20120202
  Transmission Date: 20120608
  Serious: Yes (Hospitalization, Other)
  Sender: FDA-Public Use
  Company Number: DE-ABBOTT-12P-062-0901258-00

PATIENT
  Age: 53 Year
  Weight: 75 kg

DRUGS (2)
  1. HUMIRA [Suspect]
     Indication: PSORIATIC ARTHROPATHY
     Route: 058
     Dates: start: 20100701
  2. ELIDEL [Concomitant]
     Indication: PRODUCT USED FOR UNKNOWN INDICATION
     Route: 061

REACTIONS (4)
  - CHEST PAIN [None]
  - CORONARY ARTERY DISEASE [None]
  - TROPONIN T INCREASED [None]
  - CORONARY ARTERY STENOSIS [None]
